FAERS Safety Report 14113814 (Version 1)
Quarter: 2017Q4

REPORT INFORMATION
  Report Type: Spontaneous
  Country: US (occurrence: US)
  Receive Date: 20171023
  Receipt Date: 20171023
  Transmission Date: 20180321
  Serious: No
  Sender: FDA-Public Use
  Company Number: US-JNJFOC-20101204923

PATIENT
  Age: 67 Year
  Sex: Female
  Weight: 25.4 kg

DRUGS (6)
  1. PANCREAZE [Suspect]
     Active Substance: PANCRELIPASE AMYLASE\PANCRELIPASE LIPASE\PANCRELIPASE PROTEASE
     Indication: PANCREATIC FAILURE
     Route: 048
  2. RANITIDINE. [Concomitant]
     Active Substance: RANITIDINE
     Indication: GASTROOESOPHAGEAL REFLUX DISEASE
     Route: 048
     Dates: start: 1982
  3. BONIVA [Concomitant]
     Active Substance: IBANDRONATE SODIUM
     Indication: MINERAL SUPPLEMENTATION
     Route: 048
     Dates: start: 2005
  4. PANCREAZE [Suspect]
     Active Substance: PANCRELIPASE AMYLASE\PANCRELIPASE LIPASE\PANCRELIPASE PROTEASE
     Indication: PANCREATIC FAILURE
     Dosage: BEFORE MEALS
     Route: 048
     Dates: start: 201007
  5. VIVELLE [Concomitant]
     Active Substance: ESTRADIOL
     Indication: OESTROGEN THERAPY
     Route: 061
     Dates: start: 2005
  6. CRESTOR [Concomitant]
     Active Substance: ROSUVASTATIN CALCIUM
     Indication: BLOOD CHOLESTEROL
     Route: 048
     Dates: start: 2004

REACTIONS (16)
  - Fall [Recovered/Resolved]
  - Chest pain [Recovered/Resolved]
  - Nausea [Not Recovered/Not Resolved]
  - Chills [Not Recovered/Not Resolved]
  - Weight decreased [Not Recovered/Not Resolved]
  - Faeces discoloured [Not Recovered/Not Resolved]
  - Abdominal pain [Not Recovered/Not Resolved]
  - Diarrhoea [Not Recovered/Not Resolved]
  - Thirst [Not Recovered/Not Resolved]
  - Dizziness [Not Recovered/Not Resolved]
  - Headache [Not Recovered/Not Resolved]
  - Fatigue [Not Recovered/Not Resolved]
  - Malaise [Unknown]
  - Adverse event [Unknown]
  - Contusion [Unknown]
  - Flushing [Not Recovered/Not Resolved]

NARRATIVE: CASE EVENT DATE: 201008
